FAERS Safety Report 24905716 (Version 2)
Quarter: 2025Q1

REPORT INFORMATION
  Report Type: Spontaneous
  Country: ES (occurrence: ES)
  Receive Date: 20250130
  Receipt Date: 20250207
  Transmission Date: 20250409
  Serious: Yes (Other)
  Sender: GALDERMA
  Company Number: ES-GALDERMA-ES2025001020

PATIENT

DRUGS (1)
  1. MIRVASO [Suspect]
     Active Substance: BRIMONIDINE TARTRATE
     Indication: Rosacea
     Route: 061
     Dates: start: 20241220, end: 20250117

REACTIONS (12)
  - Intracranial pressure increased [Recovered/Resolved]
  - Application site erythema [Recovered/Resolved]
  - Skin burning sensation [Recovered/Resolved]
  - Application site swelling [Recovered/Resolved]
  - Headache [Recovered/Resolved]
  - Dry mouth [Recovered/Resolved]
  - Lip dry [Recovered/Resolved]
  - Feeling hot [Recovered/Resolved]
  - Epistaxis [Recovered/Resolved]
  - Vaginal haemorrhage [Recovered/Resolved]
  - Flushing [Recovered/Resolved]
  - Intermenstrual bleeding [Recovered/Resolved]

NARRATIVE: CASE EVENT DATE: 20241201
